FAERS Safety Report 11600972 (Version 1)
Quarter: 2015Q3

REPORT INFORMATION
  Report Type: Spontaneous
  Country: US (occurrence: US)
  Receive Date: 20150916
  Receipt Date: 20150916
  Transmission Date: 20151125
  Serious: No
  Sender: FDA-Public Use
  Company Number: US-ELI_LILLY_AND_COMPANY-US201405009493

PATIENT
  Sex: Female

DRUGS (4)
  1. PRENATAL VITAMINS                  /01549301/ [Concomitant]
     Active Substance: VITAMINS
     Route: 064
  2. LANTUS [Concomitant]
     Active Substance: INSULIN GLARGINE
     Route: 064
  3. HUMALOG [Suspect]
     Active Substance: INSULIN LISPRO
     Indication: GESTATIONAL DIABETES
     Dosage: UNK, PRN
     Route: 064
  4. METFORMIN [Concomitant]
     Active Substance: METFORMIN HYDROCHLORIDE
     Route: 064

REACTIONS (2)
  - Hypothyroidism [Unknown]
  - Foetal exposure during pregnancy [Recovered/Resolved]
